FAERS Safety Report 6180726-2 (Version None)
Quarter: 2009Q2

REPORT INFORMATION
  Report Type: 
  Country: None (occurrence: None)
  Receive Date: 20090506
  Receipt Date: 20090422
  Transmission Date: 20091009
  Serious: Yes (Death, Other)
  Sender: FDA-Public Use
  Company Number: GB-ROCHE-629247

PATIENT
  Sex: Female
  Weight: 55 kg

DRUGS (6)
  1. ISOTRETINOIN [Suspect]
     Indication: ACNE
     Route: 048
     Dates: start: 20080403
  2. ISOTRETINOIN [Suspect]
     Route: 048
  3. ISOTRETINOIN [Suspect]
     Dosage: STOPPED DUE TO HYPERCHOLESTEROLEMIA.
     Route: 048
  4. ISOTRETINOIN [Suspect]
     Route: 048
     Dates: start: 20080925
  5. DIANETTE [Concomitant]
  6. LYMECYCLINE [Concomitant]

REACTIONS (11)
  - COMPLETED SUICIDE [None]
  - DEPRESSION [None]
  - DRY SKIN [None]
  - FLUSHING [None]
  - HYPERCHOLESTEROLAEMIA [None]
  - HYPERHIDROSIS [None]
  - LIP DRY [None]
  - PAIN [None]
  - PERIPHERAL COLDNESS [None]
  - SKIN ATROPHY [None]
  - WITHDRAWAL SYNDROME [None]
